FAERS Safety Report 5388824-8 (Version None)
Quarter: 2007Q3

REPORT INFORMATION
  Report Type: 
  Country: None (occurrence: None)
  Receive Date: 20070712
  Receipt Date: 20070608
  Transmission Date: 20080115
  Serious: Yes (Hospitalization)
  Sender: FDA-Public Use
  Company Number: WAES 0505USA01090

PATIENT
  Age: 47 Year
  Sex: Male
  Weight: 73.9363 kg

DRUGS (41)
  1. MK-0518 [Suspect]
     Indication: HIV INFECTION
     Dosage: 200 MG/BID/PO; 200 MG/BID/PO; 400 MG/BID/PO;
     Route: 048
     Dates: start: 20050504, end: 20050504
  2. MK-0518 [Suspect]
     Indication: HIV INFECTION
     Dosage: 200 MG/BID/PO; 200 MG/BID/PO; 400 MG/BID/PO;
     Route: 048
     Dates: start: 20050821, end: 20060529
  3. MK-0518 [Suspect]
     Indication: HIV INFECTION
     Dosage: 200 MG/BID/PO; 200 MG/BID/PO; 400 MG/BID/PO;
     Route: 048
     Dates: start: 20060530, end: 20061218
  4. PLACEBO [Suspect]
     Indication: HIV INFECTION
     Dosage: PO; PO
     Route: 048
     Dates: start: 20050504, end: 20050504
  5. PLACEBO [Suspect]
     Indication: HIV INFECTION
     Dosage: PO; PO
     Route: 048
     Dates: start: 20050821, end: 20060529
  6. TRUVADA [Suspect]
     Indication: HIV INFECTION
     Dosage: 1 TABLET/DAILY/PO; 1 TABLET/DAILY/PO
     Route: 048
     Dates: start: 20050504, end: 20050504
  7. TRUVADA [Suspect]
     Indication: HIV INFECTION
     Dosage: 1 TABLET/DAILY/PO; 1 TABLET/DAILY/PO
     Route: 048
     Dates: start: 20050821, end: 20060309
  8. NORVIR [Suspect]
     Indication: HIV INFECTION
     Dosage: 200 MG/BID/PO; 100 MG/BID/PO
     Route: 048
     Dates: start: 20000301, end: 20050504
  9. NORVIR [Suspect]
     Indication: HIV INFECTION
     Dosage: 200 MG/BID/PO; 100 MG/BID/PO
     Route: 048
     Dates: start: 20050821, end: 20061218
  10. ZIDOVUDINE [Suspect]
     Indication: HIV INFECTION
     Dosage: 300 MG/BID/PO; 300 MG/BID/PO
     Route: 048
     Dates: start: 20050504, end: 20050504
  11. ZIDOVUDINE [Suspect]
     Indication: HIV INFECTION
     Dosage: 300 MG/BID/PO; 300 MG/BID/PO
     Route: 048
     Dates: start: 20050821, end: 20061218
  12. INVIRASE [Suspect]
     Indication: HIV INFECTION
     Dosage: 2000 MG/DAILY/PO
     Route: 048
     Dates: start: 20050504, end: 20050504
  13. CRIXIVAN [Suspect]
     Indication: HIV INFECTION
     Dosage: 800 MG/BID/PO
     Route: 048
     Dates: start: 20050821, end: 20061218
  14. EMTRIVA [Suspect]
     Indication: HIV INFECTION
     Dosage: 200 MG/DAILY/PO
     Route: 048
     Dates: start: 20060310, end: 20061218
  15. VICKS INH [Suspect]
     Indication: SINUS CONGESTION
     Dosage: 4 PUFF/DAILY/INH
     Route: 055
     Dates: start: 20070110, end: 20070112
  16. FELDENE [Concomitant]
  17. FELDENE [Concomitant]
  18. FELDENE [Concomitant]
  19. LOMOTIL [Concomitant]
  20. LOPID [Concomitant]
  21. NEURONTIN [Concomitant]
  22. NICODERM [Concomitant]
  23. OXANDRIN [Concomitant]
  24. OXYCONTIN [Concomitant]
  25. OXYCONTIN [Concomitant]
  26. OXYCONTIN [Concomitant]
  27. PHENERGAN (PROMETHAZINE HYDROCHL [Concomitant]
  28. PROTONIX [Concomitant]
  29. ROXICODONE [Concomitant]
  30. SENOKOT [Concomitant]
  31. ZANTAC 150 [Concomitant]
  32. [THERAPY UNSPECIFIED] [Concomitant]
  33. ACETAMINOPHEN (+) PHENYLEPHRINE [Concomitant]
  34. DEXTROSE 5% AND SODIUM CHLORIDE 0.45% IN PLASTIC CONTAINER [Concomitant]
  35. DOCUSATE SODIUM [Concomitant]
  36. FENOFIBRATE [Concomitant]
  37. HYDROMORPHONE HYDROCHLORIDE [Concomitant]
  38. MAGNESIUM SULFATE [Concomitant]
  39. PENTAMIDINE ISETHIONATE [Concomitant]
  40. PROCHLORPERAZINE [Concomitant]
  41. SODIUM CHLORIDE [Concomitant]

REACTIONS (11)
  - BLOOD CREATININE INCREASED [None]
  - DERMATITIS ALLERGIC [None]
  - HAEMOGLOBIN DECREASED [None]
  - HEPATIC STEATOSIS [None]
  - HIATUS HERNIA [None]
  - PANCREATITIS ACUTE [None]
  - PLATELET COUNT DECREASED [None]
  - PORTAL HYPERTENSIVE GASTROPATHY [None]
  - REBOUND EFFECT [None]
  - SPLENOMEGALY [None]
  - URINE OUTPUT DECREASED [None]
